FAERS Safety Report 8145288-9 (Version None)
Quarter: 2012Q1

REPORT INFORMATION
  Report Type: 
  Country: None (occurrence: None)
  Receive Date: 20120214
  Receipt Date: 20120202
  Transmission Date: 20120608
  Serious: Yes (Other)
  Sender: FDA-Public Use
  Company Number: AUR-APL-2012-00886

PATIENT
  Age: 57 Year

DRUGS (10)
  1. SYNTHROID [Concomitant]
  2. MULTIVITAMIN [Concomitant]
  3. VENLAFAXINE [Suspect]
     Indication: PRODUCT USED FOR UNKNOWN INDICATION
  4. EFFEXOR XR [Suspect]
     Indication: PRODUCT USED FOR UNKNOWN INDICATION
     Dosage: 300 MG (150 MG, 2 IN 1 D), 150 MG (150 MG, 1 IN 1 D)
  5. ABILIFY [Concomitant]
  6. KLONOPIN [Concomitant]
  7. VITAMIN B12 [Concomitant]
  8. PROZAC [Concomitant]
  9. FISH OIL (FISH OIL) [Concomitant]
  10. LISINOPRIL [Concomitant]

REACTIONS (2)
  - PRODUCT SUBSTITUTION ISSUE [None]
  - DRUG EFFECT DECREASED [None]
